FAERS Safety Report 6569818-3 (Version None)
Quarter: 2010Q1

REPORT INFORMATION
  Report Type: 
  Country: None (occurrence: None)
  Receive Date: 20100204
  Receipt Date: 20100201
  Transmission Date: 20100710
  Serious: Yes (Death)
  Sender: FDA-Public Use
  Company Number: US-ELI_LILLY_AND_COMPANY-US201001003720

PATIENT
  Sex: Female

DRUGS (1)
  1. GEMZAR [Suspect]
     Indication: VULVAL CANCER
     Dosage: 710 MG, UNK
     Dates: start: 20091023, end: 20091023

REACTIONS (3)
  - DYSPNOEA [None]
  - MALIGNANT NEOPLASM PROGRESSION [None]
  - OFF LABEL USE [None]
